FAERS Safety Report 21579632 (Version 2)
Quarter: 2022Q4

REPORT INFORMATION
  Report Type: Spontaneous
  Country: DE (occurrence: DE)
  Receive Date: 20221110
  Receipt Date: 20221129
  Transmission Date: 20230112
  Serious: Yes (Hospitalization)
  Sender: FDA-Public Use
  Company Number: DE-ADRED-07652-02

PATIENT
  Age: 71 Year
  Sex: Female
  Weight: 66 kg

DRUGS (18)
  1. PEGFILGRASTIM [Suspect]
     Active Substance: PEGFILGRASTIM
     Indication: Product used for unknown indication
     Dosage: 6 MG, REGIMEN 11082020
     Route: 058
  2. DOXORUBICIN [Suspect]
     Active Substance: DOXORUBICIN
     Indication: Product used for unknown indication
     Dosage: 0 MG/SQ. METER, REGIMEN 11082020
     Route: 065
  3. VINCRISTINE [Suspect]
     Active Substance: VINCRISTINE
     Indication: Product used for unknown indication
     Dosage: 1 MG, REGIMEN 11082020
     Route: 065
  4. CYCLOPHOSPHAMIDE [Suspect]
     Active Substance: CYCLOPHOSPHAMIDE
     Indication: Product used for unknown indication
     Dosage: 750 MILLIGRAM/SQ. METER, REGIMEN
     Route: 065
  5. PREDNISOLONE [Suspect]
     Active Substance: PREDNISOLONE
     Indication: Product used for unknown indication
     Dosage: UNK, 11082020
     Route: 065
  6. LERCANIDIPINE [Concomitant]
     Active Substance: LERCANIDIPINE
     Dosage: 10 MG, 1-0-0-0
     Route: 065
  7. LEVOFLOXACIN [Concomitant]
     Active Substance: LEVOFLOXACIN
     Dosage: 500 MG, 1-0-0-0
     Route: 065
  8. CHOLECALCIFEROL [Concomitant]
     Active Substance: CHOLECALCIFEROL
     Dosage: 1000 IU, 1-0-0-0
     Route: 058
  9. METOPROLOL [Concomitant]
     Active Substance: METOPROLOL
     Dosage: 200 MG, 0.5-0-0-0
     Route: 065
  10. PANTOPRAZOLE SODIUM [Concomitant]
     Active Substance: PANTOPRAZOLE SODIUM
     Dosage: 40 MG, 1-0-0-0
     Route: 065
  11. TENOFOVIR ALAFENAMIDE [Concomitant]
     Active Substance: TENOFOVIR ALAFENAMIDE
     Dosage: 245 MG, 1-0-0-0
     Route: 065
  12. THIAMINE [Concomitant]
     Active Substance: THIAMINE
     Dosage: 100 MG, 1-0-0-0
     Route: 065
  13. THIAMINE [Concomitant]
     Active Substance: THIAMINE
     Dosage: 100 ?G, 1-0-0-0
     Route: 065
  14. LEVOTHYROXINE SODIUM [Concomitant]
     Active Substance: LEVOTHYROXINE SODIUM
     Dosage: 75 ?G, 1-0-0-0
     Route: 065
  15. SULFAMETHOXAZOLE\TRIMETHOPRIM [Concomitant]
     Active Substance: SULFAMETHOXAZOLE\TRIMETHOPRIM
     Dosage: 800|160 MG, REGIMEN
     Route: 065
  16. ENALAPRIL;LERCANIDIPINE [Concomitant]
     Dosage: 10/10 MG, 1-0-0-0
     Route: 065
  17. TENOFOVIR DISOPROXIL [Concomitant]
     Active Substance: TENOFOVIR DISOPROXIL
     Dosage: 245 MG, 1-0-0-0
     Route: 065
  18. ALLOPURINOL [Concomitant]
     Active Substance: ALLOPURINOL
     Dosage: 150 MG, 0-1-0-0
     Route: 065

REACTIONS (12)
  - Weight decreased [Unknown]
  - General physical health deterioration [Unknown]
  - Nausea [Unknown]
  - Vomiting [Unknown]
  - Anaemia [Unknown]
  - Condition aggravated [Unknown]
  - Presyncope [Unknown]
  - Hypertension [Unknown]
  - Cachexia [Unknown]
  - Febrile neutropenia [Unknown]
  - Fungal skin infection [Unknown]
  - Leukopenia [Unknown]
